FAERS Safety Report 25830606 (Version 1)
Quarter: 2025Q3

REPORT INFORMATION
  Report Type: Spontaneous
  Country: US (occurrence: None)
  Receive Date: 20250919
  Receipt Date: 20250919
  Transmission Date: 20251020
  Serious: Yes (Other)
  Sender: FDA-CTU
  Company Number: None

PATIENT
  Age: 21 Year
  Sex: Female
  Weight: 60.75 kg

DRUGS (7)
  1. COSMETICS [Suspect]
     Active Substance: COSMETICS
     Indication: Acne
     Dosage: OTHER STRENGTH : EXTRA;?OTHER QUANTITY : 3 OUNCE(S);?FREQUENCY : TWICE A DAY;?
     Route: 061
     Dates: start: 20250617, end: 20250915
  2. COSMETICS [Suspect]
     Active Substance: COSMETICS
  3. COSMETICS [Suspect]
     Active Substance: COSMETICS
  4. VITAMIN C [Concomitant]
     Active Substance: ASCORBIC ACID
  5. VITAMIN D [Concomitant]
     Active Substance: VITAMIN D NOS
  6. CLARITIN [Concomitant]
     Active Substance: LORATADINE
  7. MULTI-VITAMIN [Concomitant]
     Active Substance: .ALPHA.-TOCOPHEROL ACETATE, DL-\ASCORBIC ACID\CYANOCOBALAMIN\FLUORIDE ION\FOLIC ACID\NIACIN\PYRIDOXI

REACTIONS (8)
  - Product communication issue [None]
  - Application site scar [None]
  - Application site infection [None]
  - Product dispensing error [None]
  - Condition aggravated [None]
  - Acne cystic [None]
  - Drug ineffective [None]
  - Emotional disorder [None]

NARRATIVE: CASE EVENT DATE: 20250915
